FAERS Safety Report 9674755 (Version 1)
Quarter: 2013Q4

REPORT INFORMATION
  Report Type: Spontaneous
  Country: US (occurrence: None)
  Receive Date: 20131106
  Receipt Date: 20131106
  Transmission Date: 20140711
  Serious: Yes (Life-Threatening, Hospitalization, Disabling, Other)
  Sender: FDA-Public Use
  Company Number: None

PATIENT
  Age: 45 Year
  Sex: Female
  Weight: 52.16 kg

DRUGS (3)
  1. ATIVAN [Suspect]
     Indication: ANXIETY
     Dosage: 1 AS NEEDED  TAKEN BY MOUTH
     Route: 048
     Dates: start: 20131010, end: 20131104
  2. ATIVAN [Suspect]
     Indication: DIZZINESS
     Dosage: 1 AS NEEDED  TAKEN BY MOUTH
     Route: 048
     Dates: start: 20131010, end: 20131104
  3. NORTRIPTYLINE [Suspect]
     Indication: MIGRAINE
     Dosage: 1 ONCE DAILY TAKEN BY MOUTH
     Route: 048
     Dates: start: 20131103, end: 20131104

REACTIONS (4)
  - Paraesthesia oral [None]
  - Hypoaesthesia [None]
  - Muscle disorder [None]
  - Cardiac disorder [None]
